FAERS Safety Report 24700805 (Version 1)
Quarter: 2024Q4

REPORT INFORMATION
  Report Type: Spontaneous
  Country: US (occurrence: None)
  Receive Date: 20241204
  Receipt Date: 20241204
  Transmission Date: 20250114
  Serious: Yes (Death)
  Sender: Public
  Company Number: None

PATIENT
  Age: 87 Year
  Sex: Male

DRUGS (7)
  1. PIRFENIDONE [Suspect]
     Active Substance: PIRFENIDONE
     Indication: Interstitial lung disease
     Dosage: FREQUENCY : 3 TIMES A DAY;?
     Route: 048
     Dates: start: 20230118, end: 20231118
  2. LOSARTAN [Concomitant]
     Active Substance: LOSARTAN
  3. MIRTAZAPINE [Concomitant]
     Active Substance: MIRTAZAPINE
  4. ROSUVASTATIN [Concomitant]
     Active Substance: ROSUVASTATIN
  5. METOPROLOL [Concomitant]
     Active Substance: METOPROLOL
  6. VITAMINS [Concomitant]
     Active Substance: VITAMINS
  7. VITAMIN D2 [Concomitant]
     Active Substance: ERGOCALCIFEROL

REACTIONS (1)
  - Death [None]

NARRATIVE: CASE EVENT DATE: 20231118
